FAERS Safety Report 13434503 (Version 1)
Quarter: 2017Q2

REPORT INFORMATION
  Report Type: Spontaneous
  Country: US (occurrence: US)
  Receive Date: 20170413
  Receipt Date: 20170413
  Transmission Date: 20170830
  Serious: No
  Sender: FDA-Public Use
  Company Number: US-PFIZER INC-2017149555

PATIENT
  Sex: Female

DRUGS (4)
  1. MYCOBUTIN [Suspect]
     Active Substance: RIFABUTIN
     Indication: ANTIBIOTIC THERAPY
  2. RIFABUTIN. [Suspect]
     Active Substance: RIFABUTIN
     Indication: LUNG INFECTION
     Dosage: UNK
  3. MYCOBUTIN [Suspect]
     Active Substance: RIFABUTIN
     Indication: LUNG INFECTION
     Dosage: 150 MG, UNK
  4. RIFABUTIN. [Suspect]
     Active Substance: RIFABUTIN
     Indication: ANTIBIOTIC THERAPY

REACTIONS (4)
  - Malaise [Unknown]
  - Drug hypersensitivity [Unknown]
  - Product quality issue [Unknown]
  - Abdominal discomfort [Unknown]
